FAERS Safety Report 5600597-X (Version None)
Quarter: 2008Q1

REPORT INFORMATION
  Report Type: 
  Country: None (occurrence: None)
  Receive Date: 20080123
  Receipt Date: 20080111
  Transmission Date: 20080703
  Serious: Yes (Hospitalization)
  Sender: FDA-Public Use
  Company Number: GB-SANOFI-SYNTHELABO-A01200800373

PATIENT
  Sex: Male

DRUGS (5)
  1. BCG [Concomitant]
     Indication: IMMUNISATION
     Dosage: 6 DOSES
     Route: 065
     Dates: start: 20060530, end: 20060530
  2. BCG [Concomitant]
     Dosage: 3 DOSES
     Route: 065
     Dates: start: 20061206, end: 20061206
  3. ASPIRIN AND DIPYRIDAMOLE [Interacting]
     Indication: CEREBROVASCULAR ACCIDENT
     Dosage: UNK
     Route: 065
     Dates: start: 20050313, end: 20061002
  4. PLAVIX [Suspect]
     Indication: CEREBROVASCULAR ACCIDENT
     Dosage: UNK
     Route: 048
     Dates: start: 20050313, end: 20061002
  5. MICARDIS [Interacting]
     Indication: CEREBROVASCULAR ACCIDENT
     Dosage: UNK
     Route: 065
     Dates: start: 20050313, end: 20061002

REACTIONS (5)
  - BLADDER CANCER [None]
  - DRUG INTERACTION [None]
  - EMPHYSEMA [None]
  - GENERAL PHYSICAL HEALTH DETERIORATION [None]
  - PULMONARY FIBROSIS [None]
